FAERS Safety Report 13738175 (Version 2)
Quarter: 2017Q3

REPORT INFORMATION
  Report Type: Spontaneous
  Country: US (occurrence: US)
  Receive Date: 20170710
  Receipt Date: 20170816
  Transmission Date: 20171127
  Serious: No
  Sender: FDA-Public Use
  Company Number: US-009507513-1706USA003494

PATIENT
  Age: 31 Year
  Sex: Female

DRUGS (2)
  1. FOLLITROPIN BETA [Suspect]
     Active Substance: FOLLITROPIN
     Indication: INFERTILITY
     Dosage: UNK
     Route: 058
     Dates: start: 20170605, end: 20170612
  2. FOLLISTIM [Suspect]
     Active Substance: FOLLITROPIN
     Indication: INFERTILITY
     Dosage: 150 IU, ONCE A DAY
     Route: 058
     Dates: start: 20170605, end: 20170612

REACTIONS (4)
  - Device malfunction [Unknown]
  - No adverse event [Unknown]
  - Product quality issue [Unknown]
  - Underdose [Unknown]

NARRATIVE: CASE EVENT DATE: 20170605
